FAERS Safety Report 26215910 (Version 1)
Quarter: 2025Q4

REPORT INFORMATION
  Report Type: Spontaneous
  Country: GB (occurrence: GB)
  Receive Date: 20251231
  Receipt Date: 20251231
  Transmission Date: 20260117
  Serious: Yes (Other)
  Sender: TEVA
  Company Number: GB-TEVA-VS-3407578

PATIENT
  Age: 53 Year
  Sex: Male

DRUGS (5)
  1. COLCHICINE [Suspect]
     Active Substance: COLCHICINE
     Indication: Gout
     Route: 065
  2. ALLOPURINOL [Suspect]
     Active Substance: ALLOPURINOL
     Indication: Gout
     Route: 065
  3. BENZBROMARONE [Concomitant]
     Active Substance: BENZBROMARONE
     Indication: Gout
     Route: 065
  4. BENZBROMARONE [Concomitant]
     Active Substance: BENZBROMARONE
     Indication: Gout
     Route: 065
     Dates: start: 2021
  5. FEBUXOSTAT [Suspect]
     Active Substance: FEBUXOSTAT
     Indication: Gout
     Route: 065

REACTIONS (4)
  - Drug ineffective [Unknown]
  - Gastrointestinal disorder [Unknown]
  - Fatigue [Unknown]
  - Drug intolerance [Unknown]
